FAERS Safety Report 10383072 (Version 1)
Quarter: 2014Q3

REPORT INFORMATION
  Report Type: Spontaneous
  Country: US (occurrence: US)
  Receive Date: 20140813
  Receipt Date: 20140813
  Transmission Date: 20150326
  Serious: No
  Sender: FDA-Public Use
  Company Number: US-SA-FABR-1003090

PATIENT
  Age: 46 Year
  Sex: Female

DRUGS (1)
  1. FABRAZYME [Suspect]
     Active Substance: AGALSIDASE BETA
     Indication: FABRY^S DISEASE
     Dosage: 85 MG, Q2W
     Route: 042
     Dates: start: 201203

REACTIONS (4)
  - Dyspnoea [Unknown]
  - Weight increased [Unknown]
  - Paraesthesia [Unknown]
  - Diarrhoea [Unknown]

NARRATIVE: CASE EVENT DATE: 201302
